FAERS Safety Report 15287069 (Version 3)
Quarter: 2018Q3

REPORT INFORMATION
  Report Type: Report from Study
  Country: IT (occurrence: IT)
  Receive Date: 20180817
  Receipt Date: 20180827
  Transmission Date: 20181010
  Serious: Yes (Hospitalization)
  Sender: FDA-Public Use
  Company Number: IT-TEVA-2018-IT-943316

PATIENT
  Age: 82 Year
  Sex: Female

DRUGS (10)
  1. ZITROMAX 500 MG COMPRESSE RIVESTITE CON FILM [Suspect]
     Active Substance: AZITHROMYCIN
     Indication: ERYSIPELAS
     Dosage: 1 DOSAGE FORMS DAILY;
     Route: 048
     Dates: start: 20180709, end: 20180716
  2. COTAREG 80 MG/12,5 MG COMPRESSE RIVESTITE CON FILM [Concomitant]
     Indication: HYPERTENSION
     Route: 048
  3. METFORMIN HYDROCHLORIDE. [Concomitant]
     Active Substance: METFORMIN HYDROCHLORIDE
     Indication: DIABETES MELLITUS
     Route: 048
  4. ERYTHROMYCIN. [Suspect]
     Active Substance: ERYTHROMYCIN
     Indication: ERYSIPELAS
     Dosage: 3 DOSAGE FORMS DAILY;
     Route: 003
     Dates: start: 20180702, end: 20180709
  5. TARGIN 10 MG/5MG COMPRESSE A RILASCIO PROLUNGATO [Concomitant]
     Indication: PAIN
     Route: 048
  6. AUGMENTIN [Suspect]
     Active Substance: AMOXICILLIN\CLAVULANATE POTASSIUM
     Indication: ERYSIPELAS
     Dosage: 3 DOSAGE FORMS DAILY;
     Route: 048
     Dates: start: 20180601, end: 20180708
  7. TAREG [Concomitant]
     Active Substance: VALSARTAN
     Indication: HYPERTENSION
     Route: 048
  8. MOXIFLOXACIN HYDROCHLORIDE. [Suspect]
     Active Substance: MOXIFLOXACIN HYDROCHLORIDE
     Indication: ERYSIPELAS
     Dosage: 1 DOSAGE FORMS DAILY;
     Route: 048
     Dates: start: 20180702, end: 20180709
  9. DIAMICRON 30 MG COMPRESSE A RILASCIO MODIFICATO [Concomitant]
     Indication: DIABETES MELLITUS
     Route: 048
  10. LYRICA [Concomitant]
     Active Substance: PREGABALIN
     Indication: NEURALGIA
     Route: 048

REACTIONS (2)
  - Urticaria [Recovering/Resolving]
  - Drug hypersensitivity [Recovering/Resolving]

NARRATIVE: CASE EVENT DATE: 20180713
